FAERS Safety Report 15200611 (Version 1)
Quarter: 2018Q3

REPORT INFORMATION
  Report Type: Spontaneous
  Country: US (occurrence: US)
  Receive Date: 20180726
  Receipt Date: 20180726
  Transmission Date: 20181010
  Serious: Yes (Other)
  Sender: FDA-Public Use
  Company Number: US-009507513-1807USA008753

PATIENT
  Age: 22 Year
  Sex: Female

DRUGS (2)
  1. NEXPLANON [Suspect]
     Active Substance: ETONOGESTREL
     Dosage: A UNIT, UNK
     Route: 059
  2. NEXPLANON [Suspect]
     Active Substance: ETONOGESTREL
     Dosage: ANOTHER/ THE UNIT, UNK
     Route: 059

REACTIONS (7)
  - Amenorrhoea [Unknown]
  - Nausea [Unknown]
  - Device deployment issue [Recovered/Resolved]
  - Pregnancy with implant contraceptive [Unknown]
  - Vomiting [Unknown]
  - Vaginal haemorrhage [Unknown]
  - Unintended pregnancy [Unknown]
